FAERS Safety Report 18013731 (Version 2)
Quarter: 2020Q3

REPORT INFORMATION
  Report Type: Report from Study
  Country: TH (occurrence: TH)
  Receive Date: 20200713
  Receipt Date: 20200731
  Transmission Date: 20201103
  Serious: Yes (Death, Hospitalization)
  Sender: FDA-Public Use
  Company Number: TH-BAYER-2020-132900

PATIENT
  Age: 73 Year
  Sex: Female

DRUGS (1)
  1. STIVARGA [Suspect]
     Active Substance: REGORAFENIB
     Indication: COLORECTAL CANCER
     Dosage: DAILY DOSE 120 MG
     Dates: start: 20200507

REACTIONS (4)
  - Blood test abnormal [Not Recovered/Not Resolved]
  - Tumour marker increased [Not Recovered/Not Resolved]
  - Yellow skin [Not Recovered/Not Resolved]
  - Death [Fatal]

NARRATIVE: CASE EVENT DATE: 20200713
